FAERS Safety Report 6102235-9 (Version None)
Quarter: 2009Q1

REPORT INFORMATION
  Report Type: 
  Country: None (occurrence: None)
  Receive Date: 20090304
  Receipt Date: 20090220
  Transmission Date: 20090719
  Serious: Yes (Congenital Anomaly)
  Sender: FDA-Public Use
  Company Number: FR-GILEAD-2009-0020444

PATIENT
  Age: 25 Year
  Sex: Female

DRUGS (6)
  1. EMTRIVA [Suspect]
     Indication: HIV INFECTION
     Dates: start: 20050523
  2. DIDANOSINE [Suspect]
     Indication: HIV INFECTION
     Dates: start: 20050523, end: 20050908
  3. NEVIRAPINE [Suspect]
     Indication: HIV INFECTION
     Dates: start: 20050620
  4. KALETRA [Suspect]
     Indication: HIV INFECTION
     Dates: start: 20050908
  5. COMBIVIR [Suspect]
     Indication: HIV INFECTION
     Dates: start: 20050908
  6. EFAVIRENZ [Suspect]
     Indication: HIV INFECTION
     Route: 048
     Dates: start: 20050523, end: 20050908

REACTIONS (2)
  - ABORTION INDUCED [None]
  - PREGNANCY [None]
